FAERS Safety Report 9542118 (Version 2)
Quarter: 2013Q4

REPORT INFORMATION
  Report Type: Spontaneous
  Country: US (occurrence: US)
  Receive Date: 20130923
  Receipt Date: 20131030
  Transmission Date: 20140711
  Serious: Yes (Other)
  Sender: FDA-Public Use
  Company Number: US-ASTELLAS-2013US009899

PATIENT
  Age: 66 Year
  Sex: Female

DRUGS (1)
  1. VESICARE [Suspect]
     Indication: MICTURITION URGENCY
     Dosage: 10 MG, UNKNOWN/D
     Route: 048

REACTIONS (2)
  - Chest pain [Unknown]
  - Abdominal discomfort [Recovered/Resolved]
